FAERS Safety Report 13297587 (Version 1)
Quarter: 2017Q1

REPORT INFORMATION
  Report Type: Spontaneous
  Country: IT (occurrence: IT)
  Receive Date: 20170306
  Receipt Date: 20170306
  Transmission Date: 20170428
  Serious: Yes (Hospitalization)
  Sender: FDA-Public Use
  Company Number: IT-ASTELLAS-2017US007621

PATIENT
  Age: 60 Year
  Sex: Female

DRUGS (1)
  1. PROGRAF [Suspect]
     Active Substance: TACROLIMUS\TACROLIMUS ANHYDROUS
     Indication: LIVER TRANSPLANT
     Dosage: 5 MG, TWICE DAILY (OVER THE PREVIOUS 6 DAYS)
     Route: 065

REACTIONS (9)
  - Immunosuppressant drug level increased [Recovered/Resolved]
  - Toxicity to various agents [Recovering/Resolving]
  - Hypotension [Unknown]
  - Mental disorder due to a general medical condition [Unknown]
  - Renal impairment [Recovering/Resolving]
  - Complications of transplanted liver [Unknown]
  - Nervous system disorder [Recovering/Resolving]
  - Overdose [Unknown]
  - Diarrhoea [Unknown]
